FAERS Safety Report 14681753 (Version 1)
Quarter: 2018Q1

REPORT INFORMATION
  Report Type: Spontaneous
  Country: None (occurrence: US)
  Receive Date: 20180326
  Receipt Date: 20180326
  Transmission Date: 20180509
  Serious: No
  Sender: FDA-Public Use
  Company Number: US-VIFOR (INTERNATIONAL) INC.-VIT-2017-00040

PATIENT
  Sex: Male

DRUGS (21)
  1. VELTASSA [Suspect]
     Active Substance: PATIROMER
     Indication: HYPERKALAEMIA
     Route: 065
     Dates: start: 201610
  2. VELTASSA [Suspect]
     Active Substance: PATIROMER
     Route: 048
     Dates: start: 20170302
  3. LISINOPRIL. [Concomitant]
     Active Substance: LISINOPRIL
  4. NO DRUG NAME [Concomitant]
  5. CRANBERRY. [Concomitant]
     Active Substance: CRANBERRY
  6. SAW PALMETTO [Concomitant]
     Active Substance: HERBALS\SAW PALMETTO
  7. SODIUM BICARBONATE. [Concomitant]
     Active Substance: SODIUM BICARBONATE
  8. DULERA [Concomitant]
     Active Substance: FORMOTEROL FUMARATE DIHYDRATE\MOMETASONE FUROATE
  9. AVODART [Concomitant]
     Active Substance: DUTASTERIDE
  10. CINNAMOMUM VERUM BARK [Concomitant]
     Active Substance: CINNAMON
  11. CETIRIZINE HYDROCHLORIDE. [Concomitant]
     Active Substance: CETIRIZINE HYDROCHLORIDE
  12. FOLBEE [Concomitant]
     Active Substance: CYANOCOBALAMIN\FOLIC ACID\PYRIDOXINE HYDROCHLORIDE
  13. ASCORBIC ACID. [Concomitant]
     Active Substance: ASCORBIC ACID
  14. VELTASSA [Suspect]
     Active Substance: PATIROMER
     Route: 048
  15. CALCIUM [Concomitant]
     Active Substance: CALCIUM
  16. MULTIVITAMIN [Concomitant]
     Active Substance: VITAMINS
  17. AMLODIPINE BESILATE [Concomitant]
     Active Substance: AMLODIPINE BESYLATE
  18. ACETYLSALICYLIC ACID [Concomitant]
     Active Substance: ASPIRIN
  19. FAMOTIDINE. [Concomitant]
     Active Substance: FAMOTIDINE
  20. FISH OIL [Concomitant]
     Active Substance: FISH OIL
  21. GLEBURIDE [Concomitant]

REACTIONS (5)
  - Peripheral swelling [Unknown]
  - Hypersensitivity [Unknown]
  - Pruritus generalised [Unknown]
  - Urticaria [Unknown]
  - Off label use [Unknown]

NARRATIVE: CASE EVENT DATE: 2016
